FAERS Safety Report 4439321-5 (Version None)
Quarter: 2004Q3

REPORT INFORMATION
  Report Type: 
  Country: None (occurrence: None)
  Receive Date: 20040728
  Receipt Date: 20040426
  Transmission Date: 20050211
  Serious: No
  Sender: FDA-Public Use
  Company Number: USA040465965

PATIENT
  Age: 50 Year
  Sex: Female
  Weight: 59 kg

DRUGS (5)
  1. STRATTERA [Suspect]
     Indication: ATTENTION DEFICIT/HYPERACTIVITY DISORDER
     Dosage: 40 MG DAY
  2. BIAXIN [Concomitant]
  3. DOXYCYCLINE [Concomitant]
  4. LISINOPRIL [Concomitant]
  5. DYAZIDE [Concomitant]

REACTIONS (10)
  - AGITATION [None]
  - DECREASED APPETITE [None]
  - DIZZINESS [None]
  - HYPERHIDROSIS [None]
  - IRRITABILITY [None]
  - NAUSEA [None]
  - PALPITATIONS [None]
  - PSYCHOMOTOR HYPERACTIVITY [None]
  - SLEEP DISORDER [None]
  - WEIGHT DECREASED [None]
